FAERS Safety Report 5044374-X (Version None)
Quarter: 2006Q2

REPORT INFORMATION
  Report Type: 
  Country: None (occurrence: None)
  Receive Date: 20060629
  Receipt Date: 20060614
  Transmission Date: 20061013
  Serious: Yes (Other)
  Sender: FDA-Public Use
  Company Number: 2006-BP-06731RO

PATIENT
  Age: 61 Year
  Sex: Female

DRUGS (1)
  1. METHOTREXATE [Suspect]
     Indication: RHEUMATOID ARTHRITIS
     Dosage: 15 MG/WEEK 1 IN 1 WK
     Dates: start: 20010501, end: 20030801

REACTIONS (3)
  - ABASIA [None]
  - MEDIAL TIBIAL STRESS SYNDROME [None]
  - OEDEMA [None]
